FAERS Safety Report 9559813 (Version 1)
Quarter: 2013Q3

REPORT INFORMATION
  Report Type: Spontaneous
  Country: JP (occurrence: JP)
  Receive Date: 20130927
  Receipt Date: 20130927
  Transmission Date: 20140515
  Serious: Yes (Other)
  Sender: FDA-Public Use
  Company Number: JP-BAYER-2013-112877

PATIENT
  Age: 42 Year
  Sex: Female

DRUGS (2)
  1. CIPROFLOXACIN [Suspect]
     Route: 065
  2. LEVAQUIN [Suspect]
     Indication: INFECTION
     Route: 065

REACTIONS (4)
  - Impaired gastric emptying [Not Recovered/Not Resolved]
  - Nerve injury [Not Recovered/Not Resolved]
  - Neuropathy peripheral [Not Recovered/Not Resolved]
  - Pain [Not Recovered/Not Resolved]
